APPROVED DRUG PRODUCT: ENTECAVIR
Active Ingredient: ENTECAVIR
Strength: 0.5MG
Dosage Form/Route: TABLET;ORAL
Application: A205740 | Product #001 | TE Code: AB
Applicant: HETERO LABS LTD UNIT V
Approved: Aug 21, 2015 | RLD: No | RS: No | Type: RX